FAERS Safety Report 14715448 (Version 1)
Quarter: 2018Q2

REPORT INFORMATION
  Report Type: Spontaneous
  Country: US (occurrence: US)
  Receive Date: 20180403
  Receipt Date: 20180403
  Transmission Date: 20180711
  Serious: No
  Sender: FDA-Public Use
  Company Number: None

PATIENT
  Age: 43 Year
  Sex: Male
  Weight: 83.25 kg

DRUGS (1)
  1. KRATOM GREEN MAGNA DA [Suspect]
     Active Substance: MITRAGYNINE\HERBALS

REACTIONS (2)
  - Diarrhoea [None]
  - Abdominal pain upper [None]
